FAERS Safety Report 5073938-2 (Version None)
Quarter: 2006Q3

REPORT INFORMATION
  Report Type: 
  Country: None (occurrence: None)
  Receive Date: 20060808
  Receipt Date: 20060727
  Transmission Date: 20061208
  Serious: Yes (Other)
  Sender: FDA-Public Use
  Company Number: PHEH2006US09667

PATIENT
  Age: 64 Year
  Sex: Female

DRUGS (14)
  1. AREDIA [Suspect]
     Dosage: 90 MG, UNK
     Dates: start: 20020330, end: 20030226
  2. AREDIA [Suspect]
     Dosage: 90 MG, UNK
     Dates: start: 20060709, end: 20040816
  3. AREDIA [Suspect]
     Dosage: 90 MG, QMO
     Dates: start: 20040109, end: 20050816
  4. AREDIA [Suspect]
     Dosage: 90 MG, UNK
     Dates: start: 20041214, end: 20050816
  5. AREDIA [Suspect]
     Dosage: 90 MG, Q3MO
     Dates: start: 20060113, end: 20060613
  6. AREDIA [Suspect]
     Dosage: 90 MG, Q2MO
     Dates: start: 20060620
  7. VELCADE [Concomitant]
     Dosage: 2.3 MG, UNK
     Dates: start: 20030714, end: 20030728
  8. VELCADE [Concomitant]
     Dosage: 2.2 MG, UNK
     Dates: start: 20040614, end: 20040806
  9. ROCEPHIN [Concomitant]
     Dosage: 1 MG, UNK
     Dates: start: 20030811, end: 20030814
  10. ROCEPHIN [Concomitant]
     Dosage: 2000 MG, UNK
     Dates: start: 20040324, end: 20060326
  11. CYTOXAN [Concomitant]
     Dosage: 3520 MG, ONCE/SINGLE
     Dates: start: 20030813, end: 20030813
  12. MESNA [Concomitant]
     Dosage: 5400 MG, ONCE/SINGLE
     Dates: start: 20030813, end: 20030813
  13. ZOFRAN [Concomitant]
     Dosage: 20 MG, ONCE/SINGLE
     Dates: start: 20030814, end: 20030814
  14. DEXAMETHASONE [Concomitant]
     Dosage: 20 MG, UNK
     Dates: start: 20040614, end: 20040806

REACTIONS (8)
  - BONE DISORDER [None]
  - GINGIVITIS [None]
  - ORAL PAIN [None]
  - ORAL SOFT TISSUE DISORDER [None]
  - OSTEONECROSIS [None]
  - PAIN IN JAW [None]
  - SWELLING [None]
  - TRANSPLANT [None]
